FAERS Safety Report 17311047 (Version 1)
Quarter: 2020Q1

REPORT INFORMATION
  Report Type: Spontaneous
  Country: US (occurrence: US)
  Receive Date: 20200123
  Receipt Date: 20200123
  Transmission Date: 20200409
  Serious: No
  Sender: FDA-Public Use
  Company Number: US-ROCHE-2368306

PATIENT
  Age: 84 Year
  Sex: Female
  Weight: 45.4 kg

DRUGS (1)
  1. RITUXAN [Suspect]
     Active Substance: RITUXIMAB
     Indication: GRANULOMATOSIS WITH POLYANGIITIS
     Dosage: DOSAGE UNKNOWN
     Route: 042
     Dates: start: 20190729

REACTIONS (3)
  - Anxiety [Unknown]
  - Confusional state [Unknown]
  - Erythema [Unknown]

NARRATIVE: CASE EVENT DATE: 20190729
